FAERS Safety Report 25234280 (Version 1)
Quarter: 2025Q2

REPORT INFORMATION
  Report Type: Spontaneous
  Country: FR (occurrence: FR)
  Receive Date: 20250424
  Receipt Date: 20250424
  Transmission Date: 20250716
  Serious: Yes (Other)
  Sender: MYLAN
  Company Number: None

PATIENT
  Age: 37 Year
  Sex: Male

DRUGS (4)
  1. BUPRENORPHINE [Suspect]
     Active Substance: BUPRENORPHINE
     Indication: Product used for unknown indication
     Dosage: 16 MILLIGRAM, QD (16 MG/DAY AND UP TO 112 MG/DAY)
     Dates: start: 20210401
  2. BUPRENORPHINE [Suspect]
     Active Substance: BUPRENORPHINE
     Dosage: 16 MILLIGRAM, QD (16 MG/DAY AND UP TO 112 MG/DAY)
     Route: 048
     Dates: start: 20210401
  3. BUPRENORPHINE [Suspect]
     Active Substance: BUPRENORPHINE
     Dosage: 16 MILLIGRAM, QD (16 MG/DAY AND UP TO 112 MG/DAY)
     Route: 048
     Dates: start: 20210401
  4. BUPRENORPHINE [Suspect]
     Active Substance: BUPRENORPHINE
     Dosage: 16 MILLIGRAM, QD (16 MG/DAY AND UP TO 112 MG/DAY)
     Dates: start: 20210401

REACTIONS (1)
  - Drug use disorder [Not Recovered/Not Resolved]
